FAERS Safety Report 7023854-1 (Version None)
Quarter: 2010Q4

REPORT INFORMATION
  Report Type: 
  Country: None (occurrence: None)
  Receive Date: 20101001
  Receipt Date: 20100330
  Transmission Date: 20110411
  Serious: Yes (Other)
  Sender: FDA-Public Use
  Company Number: US-ASTRAZENECA-2006UW05898

PATIENT
  Age: 18089 Day
  Sex: Female
  Weight: 97.1 kg

DRUGS (23)
  1. SEROQUEL [Suspect]
     Indication: SCHIZOPHRENIA
     Route: 048
     Dates: start: 19980101
  2. SEROQUEL [Suspect]
     Indication: DEPRESSION
     Route: 048
     Dates: start: 19980101
  3. SEROQUEL [Suspect]
     Route: 048
     Dates: start: 20041119
  4. SEROQUEL [Suspect]
     Route: 048
     Dates: start: 20041119
  5. SEROQUEL [Suspect]
     Route: 048
     Dates: start: 20040914
  6. SEROQUEL [Suspect]
     Route: 048
     Dates: start: 20040914
  7. GEODON [Concomitant]
     Dates: start: 20070131
  8. RISPERDAL [Concomitant]
     Dates: start: 19970101
  9. LOVASTATIN [Concomitant]
     Dates: start: 20060101
  10. DILTIAZEM [Concomitant]
     Dates: start: 20060101
  11. EFFEXOR/EFFEXOR XR [Concomitant]
     Dosage: 25-150 MG
     Dates: start: 19970617
  12. HYMULIN 70/30 [Concomitant]
     Dosage: 50 UNITS BID
     Route: 058
     Dates: start: 19970617
  13. PROPULSID [Concomitant]
     Indication: ULCER
     Dates: start: 19970617
  14. GLYBURIDE [Concomitant]
     Dates: start: 19980101
  15. NOVOLIN 70/30 [Concomitant]
     Dosage: 70/30
     Dates: start: 20041018
  16. ACTOS [Concomitant]
     Dosage: 45 QD
     Dates: start: 20041018
  17. GLUCOPHAGE [Concomitant]
     Dosage: 1000 AM AND PM
     Dates: start: 20041018
  18. CADUET [Concomitant]
     Dosage: 5/20 QD
     Dates: start: 20040914
  19. LISINOPRIL [Concomitant]
     Dates: start: 20040914
  20. RANITIDINE [Concomitant]
     Dates: start: 20040914
  21. TRAZODONE HCL [Concomitant]
     Dates: start: 20040914
  22. LEVAQUIN [Concomitant]
     Indication: BLADDER DISORDER
     Dates: start: 20051110
  23. LEVAQUIN [Concomitant]
     Indication: RENAL DISORDER
     Dates: start: 20051110

REACTIONS (4)
  - DIABETES MELLITUS [None]
  - DIABETIC NEUROPATHY [None]
  - PANCREATITIS [None]
  - TYPE 2 DIABETES MELLITUS [None]
